FAERS Safety Report 24703777 (Version 2)
Quarter: 2024Q4

REPORT INFORMATION
  Report Type: Spontaneous
  Country: ES (occurrence: ES)
  Receive Date: 20241206
  Receipt Date: 20241225
  Transmission Date: 20250114
  Serious: Yes (Other)
  Sender: SANOFI AVENTIS
  Company Number: ES-SA-2024SA354007

PATIENT
  Age: 73 Year
  Sex: Female

DRUGS (9)
  1. ISATUXIMAB [Suspect]
     Active Substance: ISATUXIMAB
     Dosage: UNK
     Dates: start: 20241002
  2. FENTANYL [Concomitant]
     Active Substance: FENTANYL
  3. ACYCLOVIR [Concomitant]
     Active Substance: ACYCLOVIR
  4. Serc [Concomitant]
  5. CALCIFEDIOL [Concomitant]
     Active Substance: CALCIFEDIOL
  6. Salofalk [Concomitant]
  7. CHOLESTYRAMINE [Concomitant]
     Active Substance: CHOLESTYRAMINE
  8. CALCIUM [Concomitant]
     Active Substance: CALCIUM
  9. PANTOPRAZOLE [Concomitant]
     Active Substance: PANTOPRAZOLE

REACTIONS (3)
  - Thrombotic microangiopathy [Unknown]
  - Renal failure [Unknown]
  - Hypervolaemia [Unknown]

NARRATIVE: CASE EVENT DATE: 20240101
